FAERS Safety Report 5463390-7 (Version None)
Quarter: 2007Q3

REPORT INFORMATION
  Report Type: 
  Country: None (occurrence: None)
  Receive Date: 20070920
  Receipt Date: 20070915
  Transmission Date: 20080115
  Serious: Yes (Other)
  Sender: FDA-Public Use
  Company Number: US-ASTRAZENECA-2007UW14686

PATIENT
  Age: 631 Month
  Sex: Female
  Weight: 73 kg

DRUGS (5)
  1. ARIMIDEX [Suspect]
     Indication: BREAST CANCER RECURRENT
     Route: 048
     Dates: start: 20070301
  2. NEXIUM [Concomitant]
     Route: 048
  3. AMBIEN CR [Concomitant]
  4. CLONOPIN [Concomitant]
  5. CALCIUM GLUCONATE [Concomitant]

REACTIONS (11)
  - ALOPECIA [None]
  - ARTHRALGIA [None]
  - BONE PAIN [None]
  - CRYING [None]
  - DEPRESSION [None]
  - HYPOAESTHESIA [None]
  - INSOMNIA [None]
  - MOBILITY DECREASED [None]
  - PARAESTHESIA [None]
  - PHARYNGOLARYNGEAL PAIN [None]
  - WEIGHT INCREASED [None]
